FAERS Safety Report 5802975-2 (Version None)
Quarter: 2008Q2

REPORT INFORMATION
  Report Type: 
  Country: None (occurrence: None)
  Receive Date: 20080626
  Receipt Date: 20080208
  Transmission Date: 20081010
  Serious: No
  Sender: FDA-Public Use
  Company Number: US-CVT-080012

PATIENT
  Age: 49 Year
  Sex: Male

DRUGS (11)
  1. RANEXA [Suspect]
     Indication: ANGINA PECTORIS
     Dosage: 500 MG, QD, ORAL
     Route: 048
     Dates: start: 20080122, end: 20080125
  2. CRESTOR [Concomitant]
  3. AVAPRO [Concomitant]
  4. PROTONIX/01263201/ (PANTOPRAZOLE) [Concomitant]
  5. PLAVIX [Concomitant]
  6. COUMADIN [Concomitant]
  7. ENALAPRIL/00574901/ (ENALAPRIL) [Concomitant]
  8. LASIX [Concomitant]
  9. NORVASC/00972401/ (AMLODIPINE) [Concomitant]
  10. DIGOXIN/000017701/ (DIGOXIN) [Concomitant]
  11. COREG [Concomitant]

REACTIONS (2)
  - FALL [None]
  - MUSCULAR WEAKNESS [None]
